FAERS Safety Report 4422658-3 (Version None)
Quarter: 2004Q3

REPORT INFORMATION
  Report Type: 
  Country: None (occurrence: None)
  Receive Date: 20040810
  Receipt Date: 20040727
  Transmission Date: 20050211
  Serious: Yes (Hospitalization)
  Sender: FDA-Public Use
  Company Number: BR-MERCK-0408BRA00010

PATIENT
  Age: 62 Year
  Sex: Male

DRUGS (3)
  1. ADIPHENINE HYDROCHLORIDE AND DIPYRONE AND PROMETHAZINE [Concomitant]
     Indication: ANALGESIC THERAPY
     Route: 065
  2. CEPHALEXIN [Concomitant]
     Indication: ANTIBIOTIC LEVEL THERAPEUTIC
     Route: 065
  3. VIOXX [Suspect]
     Indication: POSTOPERATIVE CARE
     Route: 048
     Dates: start: 20040701, end: 20040701

REACTIONS (4)
  - DYSPEPSIA [None]
  - HAEMATEMESIS [None]
  - NAUSEA [None]
  - OESOPHAGEAL VARICES HAEMORRHAGE [None]
